FAERS Safety Report 18555874 (Version 1)
Quarter: 2020Q4

REPORT INFORMATION
  Report Type: Spontaneous
  Country: US (occurrence: US)
  Receive Date: 20201127
  Receipt Date: 20201127
  Transmission Date: 20210114
  Serious: No
  Sender: FDA-Public Use
  Company Number: US-ASTRAZENECA-2020SF50499

PATIENT
  Sex: Female

DRUGS (12)
  1. PREDNISONE. [Concomitant]
     Active Substance: PREDNISONE
     Dosage: 2.5MG UNKNOWN
     Route: 048
  2. DUONEB [Concomitant]
     Active Substance: ALBUTEROL SULFATE\IPRATROPIUM BROMIDE
     Dosage: UNKNOWN
     Route: 065
  3. FASENRA [Suspect]
     Active Substance: BENRALIZUMAB
     Indication: ASTHMA
     Dosage: 30 MG, EVERY 4 MONTHS
     Route: 058
     Dates: start: 20200819, end: 202010
  4. PREDNISONE. [Concomitant]
     Active Substance: PREDNISONE
     Dosage: 60.0MG UNKNOWN
     Route: 048
  5. PREDNISONE. [Concomitant]
     Active Substance: PREDNISONE
     Dosage: 15.0MG UNKNOWN
     Route: 048
  6. SPIRIVA [Concomitant]
     Active Substance: TIOTROPIUM BROMIDE MONOHYDRATE
     Dosage: UNKNOWN
     Route: 065
  7. EPIPEN [Concomitant]
     Active Substance: EPINEPHRINE
     Dosage: UNKNOWN
     Route: 030
  8. SINGULAIR [Concomitant]
     Active Substance: MONTELUKAST SODIUM
     Dosage: UNKNOWN
     Route: 065
  9. PREDNISONE. [Concomitant]
     Active Substance: PREDNISONE
     Dosage: 80.0MG UNKNOWN
     Route: 048
  10. SYMBICORT [Suspect]
     Active Substance: BUDESONIDE\FORMOTEROL FUMARATE DIHYDRATE
     Indication: ASTHMA
     Dosage: UNKNOWN DOSAGE, TWO TIMES A DAY
     Route: 055
  11. ALBUTEROL. [Concomitant]
     Active Substance: ALBUTEROL
     Indication: ASTHMA
     Dosage: UNKNOWN
     Route: 065
  12. PREDNISONE. [Concomitant]
     Active Substance: PREDNISONE
     Dosage: 40.0MG UNKNOWN
     Route: 048

REACTIONS (9)
  - Headache [Recovered/Resolved]
  - Dyspnoea [Recovered/Resolved]
  - Vision blurred [Unknown]
  - Nausea [Recovered/Resolved]
  - Blood pressure increased [Unknown]
  - Pallor [Unknown]
  - Vocal cord dysfunction [Unknown]
  - Dizziness [Recovered/Resolved]
  - Face oedema [Unknown]

NARRATIVE: CASE EVENT DATE: 20200819
